FAERS Safety Report 9397150 (Version 1)
Quarter: 2013Q3

REPORT INFORMATION
  Report Type: Spontaneous
  Country: US (occurrence: None)
  Receive Date: 20130710
  Receipt Date: 20130710
  Transmission Date: 20140515
  Serious: Yes (Hospitalization)
  Sender: FDA-Public Use
  Company Number: None

PATIENT
  Age: 62 Year
  Sex: Male
  Weight: 61.53 kg

DRUGS (8)
  1. COMETRIQ [Suspect]
     Indication: PANCREATIC CARCINOMA METASTATIC
     Route: 048
     Dates: start: 20130412, end: 20130611
  2. GEMCITABINE [Suspect]
     Indication: PANCREATIC CARCINOMA METASTATIC
     Route: 042
     Dates: start: 20130419, end: 20130531
  3. MARINOL [Concomitant]
  4. CREON [Concomitant]
  5. MULTIVITAMIN [Concomitant]
  6. PRILOSEC [Concomitant]
  7. PROCHLORPERAZINE [Concomitant]
  8. ACTIGALL [Concomitant]

REACTIONS (17)
  - Abdominal pain [None]
  - Decreased appetite [None]
  - Nausea [None]
  - Fatigue [None]
  - Asthenia [None]
  - Night sweats [None]
  - Hot flush [None]
  - Dysgeusia [None]
  - Dyspepsia [None]
  - Dyspepsia [None]
  - Hiccups [None]
  - Abdominal distension [None]
  - Weight increased [None]
  - Decreased appetite [None]
  - Leukocytosis [None]
  - Dehydration [None]
  - Constipation [None]
